FAERS Safety Report 20718081 (Version 1)
Quarter: 2022Q2

REPORT INFORMATION
  Report Type: Spontaneous
  Country: US (occurrence: US)
  Receive Date: 20220418
  Receipt Date: 20220418
  Transmission Date: 20220721
  Serious: Yes (Death)
  Sender: FDA-Public Use
  Company Number: US-BAUSCH-BL-2022-009370

PATIENT
  Age: 49 Year
  Sex: Female

DRUGS (2)
  1. ATIVAN [Suspect]
     Active Substance: LORAZEPAM
     Indication: Product used for unknown indication
     Dosage: 2-4 HOURS AS NEEDED
     Route: 065
  2. APOKYN [Suspect]
     Active Substance: APOMORPHINE HYDROCHLORIDE
     Indication: Product used for unknown indication
     Dosage: EVERY ONE HOUR AS NEEDED
     Route: 065

REACTIONS (6)
  - Death [Fatal]
  - Weight decreased [Unknown]
  - Feeding disorder [Unknown]
  - Bedridden [Unknown]
  - General physical health deterioration [Unknown]
  - Asthenia [Unknown]
